FAERS Safety Report 4355700-9 (Version None)
Quarter: 2004Q2

REPORT INFORMATION
  Report Type: 
  Country: None (occurrence: None)
  Receive Date: 20040507
  Receipt Date: 20040423
  Transmission Date: 20050107
  Serious: Yes (Hospitalization)
  Sender: FDA-Public Use
  Company Number: 163-20785-04040619

PATIENT
  Age: 54 Year
  Sex: Female
  Weight: 127 kg

DRUGS (12)
  1. THALOMID [Suspect]
     Indication: PANCREATIC CARCINOMA
     Dosage: 100 MG, QHS, ORAL
     Route: 048
     Dates: start: 20040316, end: 20040413
  2. GEMCITABINE(GEMCITABINE (GEMCITABINE) (UNKNOWN) [Suspect]
     Indication: PANCREATIC CARCINOMA
     Dosage: 1720 MG, Q WEEK, INTRAVENOUS
     Route: 042
     Dates: start: 20040323, end: 20040406
  3. DURAGESIC [Concomitant]
  4. DILAUDID [Concomitant]
  5. ZOLOFT [Concomitant]
  6. NAPROXEN [Concomitant]
  7. FENTANY (FENTANYL) [Concomitant]
  8. ZOFRAN (ONDANSETRON HYDROCHLORIED) [Concomitant]
  9. ATIVAN [Concomitant]
  10. PRILOSEC [Concomitant]
  11. METOCLOPRAMIDE [Concomitant]
  12. MORPHINE [Concomitant]

REACTIONS (1)
  - BILE DUCT OBSTRUCTION [None]
